FAERS Safety Report 12237941 (Version 1)
Quarter: 2016Q2

REPORT INFORMATION
  Report Type: Spontaneous
  Country: US (occurrence: None)
  Receive Date: 20160404
  Receipt Date: 20160404
  Transmission Date: 20160815
  Serious: No
  Sender: FDA-Public Use
  Company Number: None

PATIENT
  Age: 19 Year
  Sex: Male
  Weight: 70.31 kg

DRUGS (1)
  1. ZENATANE [Suspect]
     Active Substance: ISOTRETINOIN
     Indication: ACNE CYSTIC
     Dosage: 1 TABLET(S) TWICE A DAY TAKEN BY MOUTH
     Route: 048

REACTIONS (9)
  - Somnolence [None]
  - Fatigue [None]
  - Educational problem [None]
  - Hypersomnia [None]
  - Sinusitis [None]
  - Nausea [None]
  - Blood cortisol decreased [None]
  - Adrenal insufficiency [None]
  - Abdominal discomfort [None]

NARRATIVE: CASE EVENT DATE: 20151221
